FAERS Safety Report 13572243 (Version 2)
Quarter: 2017Q3

REPORT INFORMATION
  Report Type: Spontaneous
  Country: US (occurrence: US)
  Receive Date: 20170523
  Receipt Date: 20170707
  Transmission Date: 20171127
  Serious: Yes (Hospitalization, Other)
  Sender: FDA-Public Use
  Company Number: US-JNJFOC-20170503524

PATIENT
  Age: 44 Year
  Sex: Male
  Weight: 108.86 kg

DRUGS (2)
  1. PROZAC [Concomitant]
     Active Substance: FLUOXETINE HYDROCHLORIDE
     Indication: PRODUCT USED FOR UNKNOWN INDICATION
     Route: 065
  2. INVEGA SUSTENNA [Suspect]
     Active Substance: PALIPERIDONE PALMITATE
     Indication: SCHIZOPHRENIA
     Route: 030
     Dates: start: 201001, end: 20140805

REACTIONS (3)
  - Epilepsy [Not Recovered/Not Resolved]
  - Adverse event [Unknown]
  - Seizure [Unknown]

NARRATIVE: CASE EVENT DATE: 201003
